FAERS Safety Report 26180591 (Version 1)
Quarter: 2025Q4

REPORT INFORMATION
  Report Type: Spontaneous
  Country: US (occurrence: US)
  Receive Date: 20251219
  Receipt Date: 20251219
  Transmission Date: 20260119
  Serious: Yes (Hospitalization, Other)
  Sender: Alpha Cognition
  Company Number: US-CLIENT-2025-ZUN-00043

PATIENT

DRUGS (1)
  1. ZUNVEYL [Suspect]
     Active Substance: GALANTAMINE BENZOATE
     Indication: Product used for unknown indication
     Dosage: 5 MG
     Route: 065

REACTIONS (5)
  - Agitation [Unknown]
  - Delusion [Unknown]
  - Crying [Unknown]
  - Psychomotor hyperactivity [Unknown]
  - Hallucination [Unknown]
